FAERS Safety Report 9258446 (Version 1)
Quarter: 2013Q2

REPORT INFORMATION
  Report Type: Spontaneous
  Country: US (occurrence: US)
  Receive Date: 20130426
  Receipt Date: 20130426
  Transmission Date: 20140414
  Serious: No
  Sender: FDA-Public Use
  Company Number: US-B.I. PHARMACEUTICALS,INC./RIDGEFIELD-2013-BI-10221BP

PATIENT
  Sex: Female

DRUGS (5)
  1. CATAPRES TTS [Suspect]
     Indication: HYPERTENSION
     Route: 061
  2. CLONIDINE [Concomitant]
     Dosage: 0.2 MG
     Route: 048
  3. ZESTRIL [Concomitant]
     Dosage: 40 MG
     Route: 048
  4. ASPIRIN [Concomitant]
     Dosage: 81 MG
     Route: 048
  5. LABETALOL [Concomitant]
     Route: 048

REACTIONS (6)
  - Rash [Recovered/Resolved]
  - Application site pain [Recovered/Resolved]
  - Application site pruritus [Recovered/Resolved]
  - Pneumonia [Recovered/Resolved]
  - Blood pressure increased [Recovered/Resolved]
  - Heart rate increased [Recovered/Resolved]
